FAERS Safety Report 14125578 (Version 1)
Quarter: 2017Q4

REPORT INFORMATION
  Report Type: Spontaneous
  Country: US (occurrence: None)
  Receive Date: 20171025
  Receipt Date: 20171025
  Transmission Date: 20180321
  Serious: Yes (Hospitalization)
  Sender: FDA-Public Use
  Company Number: None

PATIENT
  Age: 75 Year
  Sex: Male
  Weight: 76.66 kg

DRUGS (24)
  1. FINASTERIDE 5 MG TAB CITR [Suspect]
     Active Substance: FINASTERIDE
     Indication: PROSTATOMEGALY
     Dosage: 5MG ONE TABLET ONE TIME DAILY BY MOUTH
     Route: 048
     Dates: start: 20170901, end: 20170903
  2. NITROGLYCERIN. [Concomitant]
     Active Substance: NITROGLYCERIN
  3. MYRBETRIQ [Concomitant]
     Active Substance: MIRABEGRON
  4. COENZYME Q10 [Concomitant]
     Active Substance: UBIDECARENONE
  5. LIPITOR [Concomitant]
     Active Substance: ATORVASTATIN CALCIUM
  6. NAMENDA [Concomitant]
     Active Substance: MEMANTINE HYDROCHLORIDE
  7. ASPRIN [Concomitant]
     Active Substance: ASPIRIN
  8. VITAMIN C [Concomitant]
     Active Substance: ASCORBIC ACID
  9. IPTATROPIUM BRONIDE [Concomitant]
  10. VITAMIN D3 [Concomitant]
     Active Substance: CHOLECALCIFEROL
  11. FOLIC ACID. [Concomitant]
     Active Substance: FOLIC ACID
  12. DOTERRA ESSENTIAL OILS DDR PRIME [Concomitant]
  13. GLUCOSAMINE CHONDROITON [Concomitant]
  14. PROPRANOLOL [Concomitant]
     Active Substance: PROPRANOLOL HYDROCHLORIDE
  15. ONE-A-DAY NOS [Concomitant]
     Active Substance: MINERALS\VITAMINS
  16. CAL-MAGNESIUM [Concomitant]
  17. DOTERRA ESSENTIAL OILS: MITO 2 MAX [Concomitant]
  18. RELIV POWDER [Concomitant]
     Active Substance: DIETARY SUPPLEMENT
  19. LUNA RICH [Concomitant]
  20. MODAFINIL. [Concomitant]
     Active Substance: MODAFINIL
  21. LECITHIN [Concomitant]
     Active Substance: LECITHIN
  22. BETA CAROTENE [Concomitant]
  23. OMEGA 3 FISH OIL [Concomitant]
     Active Substance: FISH OIL\OMEGA-3 FATTY ACIDS
  24. DOTERRA ESSENTIAL OILS FRANKINCENSE GUM RESIN [Concomitant]

REACTIONS (7)
  - Cognitive disorder [None]
  - Immobile [None]
  - Somnolence [None]
  - Asthenia [None]
  - Tremor [None]
  - Ataxia [None]
  - Loss of personal independence in daily activities [None]

NARRATIVE: CASE EVENT DATE: 20170902
